FAERS Safety Report 7305637-8 (Version None)
Quarter: 2011Q1

REPORT INFORMATION
  Report Type: 
  Country: None (occurrence: None)
  Receive Date: 20110222
  Receipt Date: 20110210
  Transmission Date: 20110831
  Serious: Yes (Hospitalization, Other)
  Sender: FDA-Public Use
  Company Number: US-ROCHE-735635

PATIENT
  Sex: Male
  Weight: 90.7 kg

DRUGS (1)
  1. ACCUTANE [Suspect]
     Indication: ACNE
     Route: 065
     Dates: start: 19960401, end: 20000101

REACTIONS (5)
  - ABSCESS INTESTINAL [None]
  - GASTROINTESTINAL INJURY [None]
  - DEPRESSION [None]
  - NEPHROLITHIASIS [None]
  - CROHN'S DISEASE [None]
